FAERS Safety Report 5362653-3 (Version None)
Quarter: 2007Q2

REPORT INFORMATION
  Report Type: 
  Country: None (occurrence: None)
  Receive Date: 20070619
  Receipt Date: 20070525
  Transmission Date: 20071010
  Serious: Yes (Other)
  Sender: FDA-Public Use
  Company Number: GB-PFIZER INC-2007023835

PATIENT
  Sex: Female

DRUGS (3)
  1. EXUBERA [Suspect]
     Indication: DIABETES MELLITUS
     Dosage: DAILY DOSE:11MG
     Route: 055
  2. METFORMIN HCL [Concomitant]
     Dosage: DAILY DOSE:500MG
  3. GLICLAZIDE [Concomitant]
     Dosage: DAILY DOSE:30MG

REACTIONS (7)
  - COUGH [None]
  - DEPRESSED MOOD [None]
  - DYSGEUSIA [None]
  - NAUSEA [None]
  - NECK PAIN [None]
  - PAIN [None]
  - PAIN IN JAW [None]
